FAERS Safety Report 13271764 (Version 1)
Quarter: 2017Q1

REPORT INFORMATION
  Report Type: Not Available
  Country: US (occurrence: US)
  Receive Date: 20170227
  Receipt Date: 20170227
  Transmission Date: 20170428
  Serious: Yes (Death)
  Sender: FDA-Public Use
  Company Number: US--2017-US-000011

PATIENT
  Age: 56 Year
  Sex: Male

DRUGS (2)
  1. IMMUNOSUPPRESSANT DRUGS [Concomitant]
     Indication: PRODUCT USED FOR UNKNOWN INDICATION
  2. METRONIDAZOLE BRAND UNSPECIFIED (VIVIMED) [Suspect]
     Active Substance: METRONIDAZOLE
     Indication: CLOSTRIDIUM DIFFICILE INFECTION
     Dosage: 500 MILLIGRAM/ DAY
     Route: 042

REACTIONS (3)
  - Status epilepticus [Unknown]
  - Sepsis [Fatal]
  - Toxic encephalopathy [Unknown]
